FAERS Safety Report 24296295 (Version 1)
Quarter: 2024Q3

REPORT INFORMATION
  Report Type: Spontaneous
  Country: US (occurrence: US)
  Receive Date: 20240909
  Receipt Date: 20240909
  Transmission Date: 20241016
  Serious: No
  Sender: AUROBINDO
  Company Number: US-AUROBINDO-AUR-APL-2023-074590

PATIENT
  Age: 82 Year
  Sex: Female
  Weight: 56.6 kg

DRUGS (3)
  1. DORZOLAMIDE HYDROCHLORIDE\TIMOLOL MALEATE [Suspect]
     Active Substance: DORZOLAMIDE HYDROCHLORIDE\TIMOLOL MALEATE
     Indication: Glaucoma
     Dosage: 02 DROP, DAILY  (01 IN MORNING AND 01 IN AFTERNOON)(COUPLE OF YEARS)
     Route: 065
  2. VYZULTA [Concomitant]
     Active Substance: LATANOPROSTENE BUNOD
     Indication: Hypertension
     Dosage: UNK, AT NIGHT ONCE
     Route: 065
  3. LISINOPRIL [Concomitant]
     Active Substance: LISINOPRIL
     Indication: Hypertension
     Dosage: UNK
     Route: 065

REACTIONS (6)
  - Rash erythematous [Recovering/Resolving]
  - Condition aggravated [Recovering/Resolving]
  - Skin exfoliation [Recovering/Resolving]
  - Face oedema [Not Recovered/Not Resolved]
  - Erythema [Recovering/Resolving]
  - Skin weeping [Recovering/Resolving]
